FAERS Safety Report 4980361-5 (Version None)
Quarter: 2006Q2

REPORT INFORMATION
  Report Type: 
  Country: None (occurrence: None)
  Receive Date: 20060418
  Receipt Date: 20060410
  Transmission Date: 20061013
  Serious: Yes (Other)
  Sender: FDA-Public Use
  Company Number: 2006049704

PATIENT
  Age: 76 Year
  Sex: Male
  Weight: 90.7194 kg

DRUGS (10)
  1. LIPITOR [Suspect]
     Indication: BLOOD CHOLESTEROL INCREASED
     Dosage: 80 MG (80 MG, 1 IN 1 D), ORAL
     Route: 048
  2. DOXAZOSIN (DOXAZOSIN) [Suspect]
     Indication: BLADDER DISORDER
     Dosage: 8 MG, ORAL
     Route: 048
     Dates: start: 20060101
  3. CHLORPHENIRAMINE (CHLORPHENIRAMINE) [Suspect]
     Indication: BLADDER DISORDER
     Dosage: PRN
     Dates: end: 20060401
  4. TERAZOSIN (TERAZOSIN) [Suspect]
     Indication: BLADDER DISORDER
  5. CLOPIDOGREL (CLOPIDOGREL) [Concomitant]
  6. ATENOLOL [Concomitant]
  7. LISINOPRIL [Concomitant]
  8. COLESTIPOL (COLESTIPOL) [Concomitant]
  9. GLUCOSAMINE (GLUCOSAMINE) [Concomitant]
  10. MULTIVITAMIN [Concomitant]

REACTIONS (9)
  - AORTIC ANEURYSM [None]
  - ARTHRALGIA [None]
  - BACK PAIN [None]
  - BODY HEIGHT DECREASED [None]
  - BUTTOCK PAIN [None]
  - CHROMATURIA [None]
  - DRY MOUTH [None]
  - DYSKINESIA [None]
  - MYALGIA [None]
